FAERS Safety Report 5638651-9 (Version None)
Quarter: 2008Q1

REPORT INFORMATION
  Report Type: 
  Country: None (occurrence: None)
  Receive Date: 20080226
  Receipt Date: 20070810
  Transmission Date: 20080703
  Serious: No
  Sender: FDA-Public Use
  Company Number: A0669512A

PATIENT
  Sex: Female

DRUGS (3)
  1. IMITREX [Suspect]
     Indication: MIGRAINE
     Dosage: 1INJ WEEKLY
     Route: 058
     Dates: start: 20060101
  2. IMITREX [Suspect]
     Route: 048
  3. NO CONCURRENT MEDICATION [Concomitant]

REACTIONS (3)
  - DRUG INEFFECTIVE [None]
  - LOCAL SWELLING [None]
  - VOMITING [None]
